FAERS Safety Report 10017442 (Version 1)
Quarter: 2014Q1

REPORT INFORMATION
  Report Type: Spontaneous
  Country: US (occurrence: US)
  Receive Date: 20140318
  Receipt Date: 20140318
  Transmission Date: 20141002
  Serious: No
  Sender: FDA-Public Use
  Company Number: US-PFIZER INC-2014076554

PATIENT
  Age: 54 Year
  Sex: Female
  Weight: 62.59 kg

DRUGS (4)
  1. CHANTIX [Suspect]
     Indication: SMOKING CESSATION THERAPY
     Dosage: (HALF OF THE TABLET ), 2X/DAY
     Dates: start: 20140116, end: 20140116
  2. CHANTIX [Suspect]
     Dosage: (HALF OF TABLET ), DAILY
     Dates: start: 20140117, end: 20140127
  3. ATENOLOL [Concomitant]
     Indication: HYPERTENSION
     Dosage: 25 MG, 2X/DAY
  4. HYDROCHLOROTHIAZIDE [Concomitant]
     Indication: FLUID RETENTION
     Dosage: 25 MG, DAILY

REACTIONS (2)
  - Abdominal discomfort [Recovered/Resolved]
  - Malaise [Recovered/Resolved]
